FAERS Safety Report 13430486 (Version 1)
Quarter: 2017Q2

REPORT INFORMATION
  Report Type: Spontaneous
  Country: US (occurrence: US)
  Receive Date: 20170412
  Receipt Date: 20170412
  Transmission Date: 20170830
  Serious: Yes (Hospitalization, Other)
  Sender: FDA-Public Use
  Company Number: US-PFIZER INC-2017155909

PATIENT
  Age: 72 Year
  Sex: Female

DRUGS (7)
  1. DIFLUCAN [Suspect]
     Active Substance: FLUCONAZOLE
     Indication: DYSPHAGIA
  2. DIFLUCAN [Suspect]
     Active Substance: FLUCONAZOLE
     Indication: ODYNOPHAGIA
  3. NYSTATIN. [Suspect]
     Active Substance: NYSTATIN
     Dosage: UNK
     Route: 048
     Dates: start: 20150330
  4. DIFLUCAN [Suspect]
     Active Substance: FLUCONAZOLE
     Indication: ORAL CANDIDIASIS
  5. DIFLUCAN [Suspect]
     Active Substance: FLUCONAZOLE
     Indication: STOMATITIS
     Dosage: 150 MG, FOUR DOSES
     Dates: start: 20150319, end: 20150330
  6. DIFLUCAN [Suspect]
     Active Substance: FLUCONAZOLE
     Indication: OROPHARYNGEAL PLAQUE
  7. FLUCONAZOLE. [Suspect]
     Active Substance: FLUCONAZOLE
     Dosage: 200 MG, SINGLE
     Route: 042
     Dates: start: 20150408, end: 20150408

REACTIONS (3)
  - Dizziness [Unknown]
  - Tremor [Unknown]
  - Stevens-Johnson syndrome [Unknown]

NARRATIVE: CASE EVENT DATE: 20150330
